FAERS Safety Report 20574409 (Version 1)
Quarter: 2022Q1

REPORT INFORMATION
  Report Type: Spontaneous
  Country: US (occurrence: US)
  Receive Date: 20220309
  Receipt Date: 20220309
  Transmission Date: 20220424
  Serious: Yes (Hospitalization, Other)
  Sender: FDA-Public Use
  Company Number: US-AZURITY PHARMACEUTICALS, INC.-US-2022ARB000635

PATIENT
  Sex: Female

DRUGS (3)
  1. METHOTREXATE [Suspect]
     Active Substance: METHOTREXATE
     Indication: Product used for unknown indication
     Dosage: UNK
  2. MISOPROSTOL [Concomitant]
     Active Substance: MISOPROSTOL
     Indication: Product used for unknown indication
     Dosage: UNK
  3. ALCOHOL [Concomitant]
     Active Substance: ALCOHOL
     Indication: Product used for unknown indication
     Dosage: UNK

REACTIONS (14)
  - Foetal methotrexate syndrome [Unknown]
  - Adactyly [Unknown]
  - Anonychia [Unknown]
  - Abnormal palmar/plantar creases [Unknown]
  - Retrognathia [Unknown]
  - Microgenia [Unknown]
  - Low set ears [Unknown]
  - Prominent epicanthal folds [Unknown]
  - Postnatal growth restriction [Unknown]
  - Gross motor delay [Unknown]
  - Infantile haemangioma [Unknown]
  - Eyelid ptosis [Unknown]
  - Craniosynostosis [Unknown]
  - Cerebral ventricle dilatation [Unknown]
